FAERS Safety Report 22218460 (Version 1)
Quarter: 2023Q2

REPORT INFORMATION
  Report Type: Report from Study
  Country: US (occurrence: US)
  Receive Date: 20230417
  Receipt Date: 20230417
  Transmission Date: 20230721
  Serious: Yes (Life-Threatening, Hospitalization)
  Sender: FDA-Public Use
  Company Number: US-PFIZER INC-202300153507

PATIENT
  Age: 64 Year
  Sex: Female

DRUGS (2)
  1. BRAFTOVI [Suspect]
     Active Substance: ENCORAFENIB
     Dosage: 300 MG, DAILY (TAKE 4 CAPSULES (300MG) BY MOUTH DAILY)
     Route: 048
     Dates: start: 20230301
  2. MEKTOVI [Suspect]
     Active Substance: BINIMETINIB
     Dosage: 15 MG, 2X/DAY
     Route: 048
     Dates: start: 20230301

REACTIONS (2)
  - Thrombosis [Unknown]
  - Tumour lysis syndrome [Unknown]
